FAERS Safety Report 8473089 (Version 3)
Quarter: 2012Q4

REPORT INFORMATION
  Report Type: Report from Study
  Country: FR (occurrence: FR)
  Receive Date: 20120322
  Receipt Date: 20121204
  Transmission Date: 20130627
  Serious: Yes (Death, Life-Threatening, Hospitalization)
  Sender: FDA-Public Use
  Company Number: FR-ROCHE-1050520

PATIENT
  Age: 86 Year
  Sex: Female
  Weight: 65 kg

DRUGS (4)
  1. UNFRACTIONATED HEPARIN [Suspect]
     Indication: PULMONARY EMBOLISM
     Dosage: Dose: 7470 U
     Route: 042
     Dates: start: 20110525
  2. LASILIX [Concomitant]
     Indication: ANURIA
     Route: 042
     Dates: start: 20110526
  3. LASILIX [Concomitant]
     Route: 042
     Dates: start: 20110527
  4. TENECTEPLASE [Suspect]
     Indication: PULMONARY EMBOLISM
     Route: 040
     Dates: start: 20110525

REACTIONS (2)
  - Circulatory collapse [Fatal]
  - Muscle haemorrhage [Fatal]
